FAERS Safety Report 6798350-7 (Version None)
Quarter: 2010Q2

REPORT INFORMATION
  Report Type: 
  Country: None (occurrence: None)
  Receive Date: 20100622
  Receipt Date: 20100611
  Transmission Date: 20101027
  Serious: Yes (Hospitalization)
  Sender: FDA-Public Use
  Company Number: 2010AM002217

PATIENT
  Age: 72 Year
  Sex: Female
  Weight: 83.9154 kg

DRUGS (9)
  1. SYMLINPEN 60 (PARAMILINRIDE ACETATE) PEN-INJECTOR (1.0 MG/ML) [Suspect]
     Indication: TYPE 2 DIABETES MELLITUS
     Dosage: 30 MCG;TID;SC 15 MCG; SC
     Route: 058
     Dates: start: 20070101, end: 20070101
  2. SYMLINPEN 60 (PARAMILINRIDE ACETATE) PEN-INJECTOR (1.0 MG/ML) [Suspect]
     Indication: TYPE 2 DIABETES MELLITUS
     Dosage: 30 MCG;TID;SC 15 MCG; SC
     Route: 058
     Dates: start: 20070101
  3. SIMVASTATIN [Concomitant]
  4. TRICOR [Concomitant]
  5. DIOVAN [Concomitant]
  6. CARVEDILOL [Concomitant]
  7. FUROSEMIDE [Concomitant]
  8. METFORMIN HCL [Concomitant]
  9. AMARYL [Concomitant]

REACTIONS (4)
  - BLOOD GLUCOSE DECREASED [None]
  - CORONARY ARTERY BYPASS [None]
  - HYPERHIDROSIS [None]
  - KNEE ARTHROPLASTY [None]
